FAERS Safety Report 21577944 (Version 2)
Quarter: 2022Q4

REPORT INFORMATION
  Report Type: Spontaneous
  Country: US (occurrence: US)
  Receive Date: 20221110
  Receipt Date: 20221117
  Transmission Date: 20230113
  Serious: No
  Sender: FDA-Public Use
  Company Number: US-PFIZER INC-PV202200099568

PATIENT
  Age: 67 Year
  Sex: Female

DRUGS (2)
  1. XELJANZ XR [Interacting]
     Active Substance: TOFACITINIB CITRATE
     Dosage: 11 MG, 1X/DAY
  2. AZATHIOPRINE [Interacting]
     Active Substance: AZATHIOPRINE
     Dosage: UNK

REACTIONS (2)
  - Pain [Unknown]
  - Labelled drug-drug interaction medication error [Unknown]
